FAERS Safety Report 6821337-2 (Version None)
Quarter: 2010Q3

REPORT INFORMATION
  Report Type: 
  Country: None (occurrence: None)
  Receive Date: 20100707
  Receipt Date: 20080508
  Transmission Date: 20110219
  Serious: Yes (Other)
  Sender: FDA-Public Use
  Company Number: US-PFIZER INC-2008040208

PATIENT
  Sex: Male

DRUGS (2)
  1. ZOLOFT [Suspect]
     Indication: ANXIETY
     Dosage: DAILY
     Route: 048
     Dates: start: 20050401
  2. ADDERALL XR 10 [Suspect]

REACTIONS (2)
  - CONVULSION [None]
  - THERAPY CESSATION [None]
